FAERS Safety Report 18618319 (Version 2)
Quarter: 2020Q4

REPORT INFORMATION
  Report Type: Spontaneous
  Country: PL (occurrence: PL)
  Receive Date: 20201215
  Receipt Date: 20201218
  Transmission Date: 20210114
  Serious: Yes (Life-Threatening, Hospitalization, Other)
  Sender: FDA-Public Use
  Company Number: PL-MYLANLABS-2020M1101245

PATIENT
  Age: 43 Year
  Sex: Male

DRUGS (10)
  1. DASATINIB. [Suspect]
     Active Substance: DASATINIB
     Dosage: UNK
     Route: 048
     Dates: start: 201307, end: 201408
  2. DASATINIB. [Suspect]
     Active Substance: DASATINIB
     Dosage: 50 MILLIGRAM, QD
  3. DASATINIB. [Suspect]
     Active Substance: DASATINIB
     Dosage: UNK
     Route: 048
     Dates: start: 2016, end: 2016
  4. DASATINIB. [Suspect]
     Active Substance: DASATINIB
     Indication: CHRONIC MYELOID LEUKAEMIA
     Dosage: 100 MILLIGRAM, QD
  5. DASATINIB. [Suspect]
     Active Substance: DASATINIB
     Dosage: UNK
     Route: 048
     Dates: start: 2014, end: 201605
  6. CYTARABINE. [Suspect]
     Active Substance: CYTARABINE
     Indication: PRODUCT USED FOR UNKNOWN INDICATION
     Dosage: UNK
     Route: 058
  7. HYDROXYUREA. [Suspect]
     Active Substance: HYDROXYUREA
     Indication: PRODUCT USED FOR UNKNOWN INDICATION
     Dosage: UNK
  8. IMATINIB. [Suspect]
     Active Substance: IMATINIB MESYLATE
     Indication: PRODUCT USED FOR UNKNOWN INDICATION
     Dosage: 400 MILLIGRAM, QD
     Dates: start: 201210
  9. DASATINIB. [Suspect]
     Active Substance: DASATINIB
     Dosage: ALTERNATING BETWEEN DOSES OF 50 MG/DAY AND 100 MG/DAY.
     Route: 048
     Dates: start: 201409, end: 2014
  10. DASATINIB. [Suspect]
     Active Substance: DASATINIB
     Dosage: UNK
     Route: 048
     Dates: start: 201611, end: 201705

REACTIONS (9)
  - Pneumonia [Unknown]
  - Pleural effusion [Unknown]
  - Pulmonary tuberculosis [Recovered/Resolved]
  - Treatment failure [Recovered/Resolved]
  - Thrombocytopenia [Unknown]
  - Sepsis [Unknown]
  - Therapeutic product effect incomplete [Unknown]
  - Loss of therapeutic response [Recovered/Resolved]
  - Lung opacity [Unknown]

NARRATIVE: CASE EVENT DATE: 201408
